FAERS Safety Report 5164911-4 (Version None)
Quarter: 2006Q4

REPORT INFORMATION
  Report Type: 
  Country: None (occurrence: None)
  Receive Date: 20061205
  Receipt Date: 20061124
  Transmission Date: 20070319
  Serious: Yes (Hospitalization)
  Sender: FDA-Public Use
  Company Number: CH-ELI_LILLY_AND_COMPANY-CH200611004581

PATIENT
  Age: 67 Year
  Sex: Male
  Weight: 82 kg

DRUGS (6)
  1. CYMBALTA [Suspect]
     Indication: DEPRESSION
     Dosage: 30 MG, 2/D
     Route: 048
     Dates: start: 20060921, end: 20060926
  2. ASPIRIN [Concomitant]
     Indication: MYOCARDIAL ISCHAEMIA
     Dosage: 100 MG, DAILY (1/D)
     Route: 048
  3. COZAAR [Concomitant]
     Indication: ESSENTIAL HYPERTENSION
     Dosage: 1 U, DAILY (1/D)
     Route: 048
  4. METOPROLOL SUCCINATE [Concomitant]
     Indication: ESSENTIAL HYPERTENSION
     Dosage: 25 MG, DAILY (1/D)
     Route: 048
  5. SIMVASTATIN [Concomitant]
     Indication: MYOCARDIAL ISCHAEMIA
     Dosage: 40 MG, DAILY (1/D)
     Route: 048
  6. FOLIC ACID [Concomitant]
     Indication: RENAL FAILURE
     Dosage: 5 MG, DAILY (1/D)

REACTIONS (1)
  - DIABETES MELLITUS [None]
